FAERS Safety Report 11138810 (Version 2)
Quarter: 2015Q2

REPORT INFORMATION
  Report Type: Spontaneous
  Country: JP (occurrence: JP)
  Receive Date: 20150527
  Receipt Date: 20150616
  Transmission Date: 20150821
  Serious: No
  Sender: FDA-Public Use
  Company Number: JP-AMGEN-JPNSP2015051043

PATIENT
  Age: 64 Year
  Sex: Female
  Weight: 60 kg

DRUGS (7)
  1. NAUZELIN [Concomitant]
     Active Substance: DOMPERIDONE
     Indication: PROPHYLAXIS
     Dosage: 10 MG, TID
     Route: 048
     Dates: start: 20150425, end: 20150428
  2. OLMETEC [Concomitant]
     Active Substance: OLMESARTAN MEDOXOMIL
     Indication: HYPERTENSION
     Dosage: 10 MG, QD
     Route: 048
  3. TAXOTERE [Concomitant]
     Active Substance: DOCETAXEL
     Indication: BREAST CANCER
     Dosage: UNK, 1X/3WEEKS
     Route: 041
     Dates: start: 20150424, end: 20150424
  4. DECADRON [Concomitant]
     Active Substance: DEXAMETHASONE
     Indication: PROPHYLAXIS
     Dosage: 2 MG, BID
     Route: 048
     Dates: start: 20150425, end: 20150428
  5. PROMAC [Concomitant]
     Active Substance: NITROFURANTOIN
     Indication: PROPHYLAXIS
     Dosage: 75 MG, BID
     Route: 048
     Dates: start: 20150425, end: 20150428
  6. G-LASTA [Suspect]
     Active Substance: PEGFILGRASTIM
     Indication: COLONY STIMULATING FACTOR PROPHYLAXIS
     Dosage: 3.6 MG, QD
     Route: 058
     Dates: start: 20150425, end: 20150425
  7. ENDOXAN [Concomitant]
     Active Substance: CYCLOPHOSPHAMIDE
     Indication: BREAST CANCER
     Dosage: 900 MG, 1X/3WEEKS
     Route: 041
     Dates: start: 20150424, end: 20150424

REACTIONS (2)
  - Hepatic function abnormal [Recovered/Resolved]
  - Oedema [Unknown]

NARRATIVE: CASE EVENT DATE: 201505
